FAERS Safety Report 17706222 (Version 1)
Quarter: 2020Q2

REPORT INFORMATION
  Report Type: Spontaneous
  Country: US (occurrence: US)
  Receive Date: 20200424
  Receipt Date: 20200424
  Transmission Date: 20200714
  Serious: No
  Sender: FDA-Public Use
  Company Number: US-BAUSCH-BL-2020-011217

PATIENT
  Sex: Female

DRUGS (1)
  1. LUMIFY [Suspect]
     Active Substance: BRIMONIDINE TARTRATE
     Indication: OCULAR HYPERAEMIA
     Dosage: FIRST DROP IN ONE EYE, PLACED ANOTHER 3 DROPS IN THE EYE AND REPEATED THIS TWICE LATER IN THE DAY
     Route: 047

REACTIONS (3)
  - Ocular hyperaemia [Unknown]
  - Therapeutic product effect incomplete [Unknown]
  - Extra dose administered [Unknown]
